FAERS Safety Report 8463695 (Version 5)
Quarter: 2013Q2

REPORT INFORMATION
  Report Type: Spontaneous
  Country: US (occurrence: None)
  Receive Date: 20120308
  Receipt Date: 20130614
  Transmission Date: 20140414
  Serious: Yes (Life-Threatening)
  Sender: FDA-Public Use
  Company Number: 2012031431

PATIENT
  Age: 70 Year
  Sex: Female
  Weight: 66.4 kg

DRUGS (8)
  1. BERINERT [Suspect]
     Indication: HEREDITARY ANGIOEDEMA
     Dosage: (1250 IU, 4 ML/MIN (TOTAL DOSE 28 ML) INTRAVENOUS (NOT OTHERWISE SPECIFIED))
     Route: 042
     Dates: start: 20120123, end: 20120123
  2. CELEBREX [Concomitant]
  3. VICODIN [Concomitant]
  4. ANCEF [Concomitant]
  5. ZOFRAN (ONANSETRON) [Concomitant]
  6. DANAZOL [Concomitant]
  7. BENICAR [Concomitant]
  8. XARELTO (ALL OTHER THERAPEUTIC PRODUCTS) [Concomitant]

REACTIONS (8)
  - TRANSIENT ISCHAEMIC ATTACK [None]
  - FAT EMBOLISM [None]
  - VIITH NERVE PARALYSIS [None]
  - HEMIPLEGIA [None]
  - APHASIA [None]
  - Pruritus [None]
  - Motion sickness [None]
  - Coagulopathy [None]
